FAERS Safety Report 7179054-8 (Version None)
Quarter: 2010Q4

REPORT INFORMATION
  Report Type: 
  Country: None (occurrence: None)
  Receive Date: 20101221
  Receipt Date: 20101221
  Transmission Date: 20110411
  Serious: Yes (Hospitalization)
  Sender: FDA-Public Use
  Company Number: PHHO2008NO11865

PATIENT
  Sex: Male

DRUGS (10)
  1. ACLASTA/ZOLEDRONATE T29581+A+ [Suspect]
     Indication: OSTEOPOROSIS
     Dosage: 5 MG
     Route: 042
     Dates: start: 20080827
  2. VITAMIN D [Concomitant]
  3. CALCIUM [Concomitant]
  4. ADALAT [Concomitant]
  5. CENTYL MITE W/POTASSIUM CHLORIDE [Concomitant]
  6. ATENOLOL [Concomitant]
  7. SPIRIX [Concomitant]
  8. OMNIC [Concomitant]
  9. SIMVASTATIN [Concomitant]
  10. ALBYL-E [Concomitant]

REACTIONS (6)
  - ANGINA UNSTABLE [None]
  - ATRIAL FIBRILLATION [None]
  - CHEST PAIN [None]
  - CORONARY ARTERY DISEASE [None]
  - PALPITATIONS [None]
  - RENAL IMPAIRMENT [None]
